FAERS Safety Report 8226436-9 (Version None)
Quarter: 2012Q1

REPORT INFORMATION
  Report Type: 
  Country: None (occurrence: None)
  Receive Date: 20120321
  Receipt Date: 20120314
  Transmission Date: 20120608
  Serious: Yes (Other)
  Sender: FDA-Public Use
  Company Number: BE-AMGEN-BELSP2012016728

PATIENT
  Age: 62 Year
  Sex: Female

DRUGS (3)
  1. PROLIA [Suspect]
     Indication: OSTEOPOROSIS
     Dosage: 60 MG, Q6MO
     Dates: start: 20120101
  2. PROGRAF [Concomitant]
     Indication: RENAL TRANSPLANT
     Dosage: 3 MG, UNK
  3. PROGRAF [Concomitant]
     Dosage: 6 MG, UNK

REACTIONS (6)
  - RENAL FAILURE [None]
  - TREMOR [None]
  - RENAL IMPAIRMENT [None]
  - IMMUNOSUPPRESSANT DRUG LEVEL DECREASED [None]
  - GENERAL PHYSICAL HEALTH DETERIORATION [None]
  - DIARRHOEA [None]
